FAERS Safety Report 18095597 (Version 1)
Quarter: 2020Q3

REPORT INFORMATION
  Report Type: Spontaneous
  Country: US (occurrence: US)
  Receive Date: 20200730
  Receipt Date: 20200730
  Transmission Date: 20201103
  Serious: No
  Sender: FDA-Public Use
  Company Number: US-BAUSCH-BL-2020-021323

PATIENT
  Age: 63 Year
  Sex: Male

DRUGS (2)
  1. MICONAZOLE NITRATE. [Concomitant]
     Active Substance: MICONAZOLE NITRATE
     Indication: PRODUCT USED FOR UNKNOWN INDICATION
  2. JUBLIA [Suspect]
     Active Substance: EFINACONAZOLE
     Indication: ONYCHOMYCOSIS
     Dosage: DOSE: 1 UNSPECIFIED UNITS
     Route: 061
     Dates: start: 201907

REACTIONS (3)
  - Therapeutic product effect incomplete [Unknown]
  - Product prescribing error [Unknown]
  - Incorrect product administration duration [Unknown]
